FAERS Safety Report 14757460 (Version 2)
Quarter: 2018Q2

REPORT INFORMATION
  Report Type: Spontaneous
  Country: FR (occurrence: FR)
  Receive Date: 20180413
  Receipt Date: 20180619
  Transmission Date: 20180711
  Serious: Yes (Other)
  Sender: FDA-Public Use
  Company Number: FR-AUROBINDO-AUR-APL-2018-019689

PATIENT
  Age: 39 Year
  Sex: Female

DRUGS (12)
  1. HUMIRA [Suspect]
     Active Substance: ADALIMUMAB
     Indication: BIRDSHOT CHORIORETINOPATHY
     Dosage: EVERY TWO WEEKS
     Route: 065
  2. PREDNISONE. [Suspect]
     Active Substance: PREDNISONE
     Dosage: 9 MILLIGRAM
     Route: 065
  3. INFLIXIMAB [Suspect]
     Active Substance: INFLIXIMAB
     Indication: BIRDSHOT CHORIORETINOPATHY
     Dosage: UNK
     Route: 065
  4. PREDNISONE. [Suspect]
     Active Substance: PREDNISONE
     Dosage: 20 MILLIGRAM
  5. PREDNISONE. [Suspect]
     Active Substance: PREDNISONE
     Indication: BIRDSHOT CHORIORETINOPATHY
     Dosage: 10 MILLIGRAM
     Route: 065
  6. TOCILIZUMAB. [Concomitant]
     Active Substance: TOCILIZUMAB
     Indication: BIRDSHOT CHORIORETINOPATHY
     Dosage: EVERY 4 WEEKS
     Route: 065
  7. MEPREDNISONE [Suspect]
     Active Substance: MEPREDNISONE
     Indication: BIRDSHOT CHORIORETINOPATHY
     Dosage: FOR THREE CONSECUTIVE DAYS
     Route: 065
  8. PREDNISONE. [Suspect]
     Active Substance: PREDNISONE
     Dosage: 12.5 MILLIGRAM
     Route: 065
  9. PREDNISONE. [Suspect]
     Active Substance: PREDNISONE
     Dosage: 40 MILLIGRAM
     Route: 065
  10. MYCOPHENOLATE MOFETIL. [Suspect]
     Active Substance: MYCOPHENOLATE MOFETIL
     Indication: BIRDSHOT CHORIORETINOPATHY
     Dosage: 2 GRAM
     Route: 065
  11. PREDNISONE. [Suspect]
     Active Substance: PREDNISONE
     Dosage: 1 MILLIGRAM/KILOGRAM
  12. INTERFERON ALFA 2A [Suspect]
     Active Substance: INTERFERON ALFA-2A
     Indication: BIRDSHOT CHORIORETINOPATHY
     Dosage: 3 MILLION UNITS (1)
     Route: 065

REACTIONS (6)
  - Birdshot chorioretinopathy [Recovering/Resolving]
  - Lung infection [Unknown]
  - Rebound effect [Unknown]
  - Macular oedema [Recovering/Resolving]
  - Drug dependence [Unknown]
  - Drug ineffective [Unknown]
